FAERS Safety Report 19672303 (Version 3)
Quarter: 2021Q4

REPORT INFORMATION
  Report Type: Spontaneous
  Country: US (occurrence: US)
  Receive Date: 20210808
  Receipt Date: 20211029
  Transmission Date: 20220303
  Serious: No
  Sender: FDA-Public Use
  Company Number: US-JNJFOC-20210807843

PATIENT
  Age: 68 Year
  Sex: Female
  Weight: 136.2 kg

DRUGS (11)
  1. TREMFYA [Suspect]
     Active Substance: GUSELKUMAB
     Indication: Product used for unknown indication
     Route: 058
     Dates: start: 20210724, end: 20210724
  2. BIOTIN [Concomitant]
     Active Substance: BIOTIN
     Dosage: 5000 MCG
     Route: 048
     Dates: start: 20191010
  3. AUGMENTIN [Concomitant]
     Active Substance: AMOXICILLIN\CLAVULANATE POTASSIUM
     Indication: Pyelonephritis
     Dates: start: 20210714, end: 20210723
  4. PRAVASTATIN [Concomitant]
     Active Substance: PRAVASTATIN
     Dates: start: 20210117
  5. LOSARTAN [Concomitant]
     Active Substance: LOSARTAN
     Dates: start: 20200911
  6. METFORMIN [Concomitant]
     Active Substance: METFORMIN HYDROCHLORIDE
     Dates: start: 20200511
  7. COSENTYX [Concomitant]
     Active Substance: SECUKINUMAB
     Dates: start: 20201014
  8. DIETARY SUPPLEMENT\HERBALS [Concomitant]
     Active Substance: DIETARY SUPPLEMENT\HERBALS
     Dates: start: 20200721
  9. CYANOCOBALAMIN [Concomitant]
     Active Substance: CYANOCOBALAMIN
     Dates: start: 20191010
  10. VITAMIN C [Concomitant]
     Active Substance: ASCORBIC ACID
     Dates: start: 20191010
  11. ZINC [Concomitant]
     Active Substance: ZINC

REACTIONS (4)
  - Headache [Not Recovered/Not Resolved]
  - Insomnia [Not Recovered/Not Resolved]
  - Pain [Unknown]
  - Swelling [Unknown]

NARRATIVE: CASE EVENT DATE: 20210724
